FAERS Safety Report 16152336 (Version 1)
Quarter: 2019Q2

REPORT INFORMATION
  Report Type: Spontaneous
  Country: US (occurrence: US)
  Receive Date: 20190402
  Receipt Date: 20190402
  Transmission Date: 20190711
  Serious: No
  Sender: FDA-Public Use
  Company Number: None

PATIENT
  Age: 68 Year
  Sex: Female
  Weight: 74.25 kg

DRUGS (1)
  1. BASIC CARE SALINE NASAL SPRAY 3 FL OZ (88 ML) [Suspect]
     Active Substance: SODIUM CHLORIDE
     Indication: NASAL CONGESTION
     Dosage: ?          QUANTITY:2 SPRAY(S);OTHER ROUTE:SPRAY OR STREAM INTO NASAL PASSAGES?
     Dates: start: 20190401, end: 20190401

REACTIONS (1)
  - Throat irritation [None]

NARRATIVE: CASE EVENT DATE: 20190401
